FAERS Safety Report 20728946 (Version 2)
Quarter: 2022Q2

REPORT INFORMATION
  Report Type: Spontaneous
  Country: SI (occurrence: SI)
  Receive Date: 20220420
  Receipt Date: 20220429
  Transmission Date: 20220720
  Serious: Yes (Hospitalization, Other)
  Sender: FDA-Public Use
  Company Number: SI-MACLEODS PHARMACEUTICALS US LTD-MAC2022035266

PATIENT

DRUGS (12)
  1. VENLAFAXINE [Suspect]
     Active Substance: VENLAFAXINE HYDROCHLORIDE
     Indication: Generalised anxiety disorder
     Dosage: UNK
     Route: 065
  2. VENLAFAXINE [Suspect]
     Active Substance: VENLAFAXINE HYDROCHLORIDE
     Dosage: 300 MILLIGRAM, QD
     Route: 065
  3. QUETIAPINE [Suspect]
     Active Substance: QUETIAPINE
     Indication: Generalised anxiety disorder
     Dosage: 50 MILLIGRAM, QD
     Route: 065
  4. QUETIAPINE [Suspect]
     Active Substance: QUETIAPINE
     Dosage: UNK
     Route: 065
  5. PREGABALIN [Suspect]
     Active Substance: PREGABALIN
     Indication: Generalised anxiety disorder
     Dosage: 25 MILLIGRAM, BID, UP TO 2X PER DAY
     Route: 065
  6. PREGABALIN [Suspect]
     Active Substance: PREGABALIN
     Dosage: 50 MILLIGRAM, TID, WAS INCREASED TO 3X50
     Route: 065
  7. PREGABALIN [Suspect]
     Active Substance: PREGABALIN
     Dosage: UNK (HIGHER DOSE)
     Route: 065
  8. PREGABALIN [Suspect]
     Active Substance: PREGABALIN
     Dosage: 150 MILLIGRAM, BID
     Route: 065
  9. PREGABALIN [Suspect]
     Active Substance: PREGABALIN
     Dosage: 300 MILLIGRAM, BID
     Route: 065
  10. TIANEPTINE [Suspect]
     Active Substance: TIANEPTINE
     Indication: Generalised anxiety disorder
     Dosage: UNK
     Route: 065
  11. SERTRALINE [Concomitant]
     Active Substance: SERTRALINE HYDROCHLORIDE
     Indication: Generalised anxiety disorder
     Dosage: UNK
     Route: 065
  12. SULPIRIDE [Concomitant]
     Active Substance: SULPIRIDE
     Indication: Generalised anxiety disorder
     Dosage: UNK
     Route: 065

REACTIONS (4)
  - Toxicity to various agents [Unknown]
  - Drug abuse [Unknown]
  - Drug dependence [Unknown]
  - Drug ineffective [Unknown]
